FAERS Safety Report 25257741 (Version 3)
Quarter: 2025Q2

REPORT INFORMATION
  Report Type: Spontaneous
  Country: US (occurrence: US)
  Receive Date: 20250430
  Receipt Date: 20250625
  Transmission Date: 20250717
  Serious: Yes (Hospitalization, Other)
  Sender: ALEXION PHARMACEUTICALS
  Company Number: US-ASTRAZENECA-202504USA020860US

PATIENT
  Age: 78 Year

DRUGS (20)
  1. FARXIGA [Suspect]
     Active Substance: DAPAGLIFLOZIN PROPANEDIOL
     Route: 065
  2. ROSUVASTATIN [Suspect]
     Active Substance: ROSUVASTATIN
     Route: 065
  3. DOCETAXEL [Suspect]
     Active Substance: DOCETAXEL
     Indication: Adenocarcinoma
     Dosage: 180 MILLIGRAM, Q3W
  4. DOCETAXEL [Suspect]
     Active Substance: DOCETAXEL
     Dosage: 180 MILLIGRAM, Q3W
  5. ESOMEPRAZOLE MAGNESIUM [Suspect]
     Active Substance: ESOMEPRAZOLE MAGNESIUM
     Route: 065
  6. VUDALIMAB [Suspect]
     Active Substance: VUDALIMAB
     Dosage: 1250 MILLIGRAM, Q2W
  7. VUDALIMAB [Suspect]
     Active Substance: VUDALIMAB
     Dosage: 312.5 MILLIGRAM, Q2W
  8. LEUPROLIDE [Concomitant]
     Active Substance: LEUPROLIDE
     Route: 065
  9. ASPIRIN [Concomitant]
     Active Substance: ASPIRIN
     Route: 065
  10. Adult multivitamin [Concomitant]
     Route: 065
  11. BENICAR [Concomitant]
     Active Substance: OLMESARTAN MEDOXOMIL
     Route: 065
  12. SINGULAIR [Concomitant]
     Active Substance: MONTELUKAST SODIUM
     Route: 065
  13. FENOFIBRATE [Concomitant]
     Active Substance: FENOFIBRATE
     Route: 065
  14. NIACIN [Concomitant]
     Active Substance: NIACIN
     Route: 065
  15. PEGFILGRASTIM [Concomitant]
     Active Substance: PEGFILGRASTIM
     Route: 065
  16. HYDROXYZINE [Concomitant]
     Active Substance: HYDROXYZINE HYDROCHLORIDE
     Route: 065
  17. AZELASTINE [Concomitant]
     Active Substance: AZELASTINE
     Route: 065
  18. ANASTROZOLE [Concomitant]
     Active Substance: ANASTROZOLE
     Route: 065
  19. ATENOLOL [Concomitant]
     Active Substance: ATENOLOL
     Route: 065
  20. LACTATED RINGERS SOLUTION [Concomitant]
     Active Substance: CALCIUM CHLORIDE\POTASSIUM CHLORIDE\SODIUM CHLORIDE\SODIUM LACTATE
     Route: 065

REACTIONS (20)
  - White blood cell count decreased [Recovered/Resolved]
  - Neutrophil count decreased [Recovered/Resolved]
  - Hyperthyroidism [Unknown]
  - Complication associated with device [Recovered/Resolved]
  - Sepsis [Recovered/Resolved]
  - Device occlusion [Recovered/Resolved]
  - Pulmonary embolism [Not Recovered/Not Resolved]
  - Troponin increased [Unknown]
  - Myocardial ischaemia [Unknown]
  - Blood lactic acid abnormal [Unknown]
  - Acute respiratory failure [Recovering/Resolving]
  - COVID-19 [Unknown]
  - Pneumonia [Unknown]
  - Encephalopathy [Unknown]
  - Metabolic encephalopathy [Unknown]
  - Infection [Unknown]
  - Coagulopathy [Unknown]
  - Injury [Unknown]
  - Malignant neoplasm progression [Unknown]
  - Adenocarcinoma [Unknown]
